FAERS Safety Report 24573039 (Version 3)
Quarter: 2024Q4

REPORT INFORMATION
  Report Type: Spontaneous
  Country: AU (occurrence: AU)
  Receive Date: 20241101
  Receipt Date: 20241204
  Transmission Date: 20250115
  Serious: Yes (Other)
  Sender: CARA THERAPEUTICS
  Company Number: AU-Vifor Pharma-VIT-2024-09945

PATIENT
  Age: 73 Year
  Sex: Female

DRUGS (14)
  1. KORSUVA [Suspect]
     Active Substance: DIFELIKEFALIN ACETATE
     Indication: Chronic kidney disease-associated pruritus
     Dosage: EXPIRY DATE: FEB-2025
     Route: 042
     Dates: start: 20241018
  2. ALLOPURINOL [Concomitant]
     Active Substance: ALLOPURINOL
     Dosage: 100 MG
  3. BISOPROLOL [Concomitant]
     Active Substance: BISOPROLOL
     Dosage: 10 MG
  4. AMLODIPINE [Concomitant]
     Active Substance: AMLODIPINE BESYLATE
     Dosage: 10 MG
  5. ROSUVASTATIN [Concomitant]
     Active Substance: ROSUVASTATIN
     Dosage: 40 MG
  6. ASPIRIN [Concomitant]
     Active Substance: ASPIRIN
     Dosage: 100 MG
  7. CALCITRIOL [Concomitant]
     Active Substance: CALCITRIOL
     Dosage: 0.25 MCG SECOND DAILY
  8. GABAPENTIN [Concomitant]
     Active Substance: GABAPENTIN
     Dosage: 100 MG NOCTE (100 MG)
  9. ALPRAZOLAM [Concomitant]
     Active Substance: ALPRAZOLAM
     Dosage: 0.5 MG PREDIALYSIS (0.5 MG)
  10. LETROZOLE [Concomitant]
     Active Substance: LETROZOLE
  11. PANTOPRAZOLE [Concomitant]
     Active Substance: PANTOPRAZOLE
     Dosage: 20 MG
  12. SEVELAMER [Concomitant]
     Active Substance: SEVELAMER
     Dosage: 800 MG WITH EACH MEAL (800 MG)
  13. RIVAROXABAN [Concomitant]
     Active Substance: RIVAROXABAN
     Dosage: A TRACK TRIAL MEDICATION, LOW DOSE
  14. PLACEBO [Concomitant]
     Active Substance: PLACEBO
     Dosage: A TRACK TRIAL MEDICATION, LOW DOSE

REACTIONS (3)
  - Hypertension [Recovered/Resolved]
  - Oral discomfort [Recovered/Resolved]
  - Ear discomfort [Recovered/Resolved]

NARRATIVE: CASE EVENT DATE: 20241018
